FAERS Safety Report 14673701 (Version 2)
Quarter: 2018Q2

REPORT INFORMATION
  Report Type: Other
  Country: CA (occurrence: CA)
  Receive Date: 20180323
  Receipt Date: 20180422
  Transmission Date: 20180711
  Serious: Yes (Other)
  Sender: FDA-Public Use
  Company Number: CA-APOTEX-2018AP008235

PATIENT
  Age: 65 Year
  Sex: Female

DRUGS (2)
  1. SALBUTAMOL [Suspect]
     Active Substance: ALBUTEROL
     Indication: PRODUCT USED FOR UNKNOWN INDICATION
     Route: 065
  2. FLUTICASONE PROPIONATE W/SALMETEROL XINAFOATE [Suspect]
     Active Substance: FLUTICASONE PROPIONATE\SALMETEROL XINAFOATE
     Indication: PRODUCT USED FOR UNKNOWN INDICATION
     Dosage: 2 DF, BID ROUTE: INHALATION
     Route: 045

REACTIONS (4)
  - Cholecystectomy [Not Recovered/Not Resolved]
  - Cough [Not Recovered/Not Resolved]
  - Rib fracture [Not Recovered/Not Resolved]
  - Ill-defined disorder [Not Recovered/Not Resolved]
